FAERS Safety Report 12720795 (Version 4)
Quarter: 2017Q3

REPORT INFORMATION
  Report Type: Report from Study
  Country: US (occurrence: US)
  Receive Date: 20160907
  Receipt Date: 20170814
  Transmission Date: 20171127
  Serious: No
  Sender: FDA-Public Use
  Company Number: PHEH2016US022299

PATIENT
  Sex: Female

DRUGS (1)
  1. GILENYA [Suspect]
     Active Substance: FINGOLIMOD HYDROCHLORIDE
     Indication: RELAPSING-REMITTING MULTIPLE SCLEROSIS
     Dosage: UNK UNK, QD
     Route: 048
     Dates: start: 20120801

REACTIONS (11)
  - Balance disorder [Unknown]
  - Temperature intolerance [Unknown]
  - Paraesthesia [Unknown]
  - Cognitive disorder [Unknown]
  - Disturbance in attention [Unknown]
  - Fall [Unknown]
  - Contusion [Unknown]
  - Limb discomfort [Unknown]
  - Memory impairment [Unknown]
  - Herpes zoster [Unknown]
  - Depression [Unknown]

NARRATIVE: CASE EVENT DATE: 20160824
